FAERS Safety Report 5660699-9 (Version None)
Quarter: 2008Q1

REPORT INFORMATION
  Report Type: 
  Country: None (occurrence: None)
  Receive Date: 20080311
  Receipt Date: 20080304
  Transmission Date: 20080703
  Serious: Yes (Hospitalization)
  Sender: FDA-Public Use
  Company Number: US-AVENTIS-200811391US

PATIENT
  Age: 64 Year
  Sex: Female

DRUGS (5)
  1. ARAVA [Suspect]
     Dosage: DOSE: UNK
  2. WARFARIN SODIUM [Suspect]
     Dosage: DOSE: UNK
  3. METHOTREXATE [Concomitant]
     Dosage: DOSE: UNK
  4. PREDNISONE TAB [Concomitant]
     Dosage: DOSE: UNK
  5. LIPITOR [Concomitant]
     Dosage: DOSE: UNK

REACTIONS (3)
  - COAGULATION TIME PROLONGED [None]
  - FAECES DISCOLOURED [None]
  - HAEMORRHAGE [None]
